FAERS Safety Report 24765884 (Version 2)
Quarter: 2024Q4

REPORT INFORMATION
  Report Type: Report from Study
  Country: US (occurrence: US)
  Receive Date: 20241223
  Receipt Date: 20241230
  Transmission Date: 20250114
  Serious: Yes (Other)
  Sender: ABBVIE
  Company Number: US-ABBVIE-6053612

PATIENT
  Age: 59 Year
  Sex: Female

DRUGS (1)
  1. HUMIRA [Suspect]
     Active Substance: ADALIMUMAB
     Indication: Colitis ulcerative
     Dosage: LAST ADMIN DATE 2024
     Route: 058
     Dates: start: 20240201

REACTIONS (21)
  - Systemic lupus erythematosus [Recovered/Resolved]
  - Drug resistance [Unknown]
  - Joint swelling [Unknown]
  - Peripheral swelling [Unknown]
  - Pruritus [Unknown]
  - Dyspnoea [Unknown]
  - Genital burning sensation [Unknown]
  - Rash vesicular [Unknown]
  - Gait disturbance [Unknown]
  - Skin burning sensation [Unknown]
  - Vulvovaginal dryness [Unknown]
  - Diarrhoea [Unknown]
  - Haematochezia [Unknown]
  - Vision blurred [Unknown]
  - Oropharyngeal pain [Unknown]
  - Dyspepsia [Unknown]
  - Abdominal pain upper [Unknown]
  - Toothache [Unknown]
  - Headache [Unknown]
  - Pyrexia [Unknown]
  - Illness [Unknown]

NARRATIVE: CASE EVENT DATE: 20240101
